FAERS Safety Report 20728529 (Version 1)
Quarter: 2022Q2

REPORT INFORMATION
  Report Type: Report from Study
  Country: US (occurrence: US)
  Receive Date: 20220420
  Receipt Date: 20220420
  Transmission Date: 20220720
  Serious: Yes (Hospitalization, Other)
  Sender: FDA-Public Use
  Company Number: US-ABBVIE-22K-163-4363689-00

PATIENT
  Sex: Female

DRUGS (2)
  1. HUMIRA [Suspect]
     Active Substance: ADALIMUMAB
     Indication: Psoriasis
     Dosage: CITRATE FREE
     Route: 058
  2. VANCOMYCIN [Suspect]
     Active Substance: VANCOMYCIN
     Indication: Hysterectomy
     Route: 042

REACTIONS (3)
  - Hysterectomy [Recovering/Resolving]
  - Post procedural infection [Unknown]
  - Renal failure [Unknown]
